FAERS Safety Report 8074331-0 (Version None)
Quarter: 2012Q1

REPORT INFORMATION
  Report Type: 
  Country: None (occurrence: None)
  Receive Date: 20120126
  Receipt Date: 20120113
  Transmission Date: 20120608
  Serious: Yes (Other)
  Sender: FDA-Public Use
  Company Number: DE-MYLANLABS-2012S1000930

PATIENT
  Age: 61 Year
  Sex: Female
  Weight: 91 kg

DRUGS (3)
  1. RASILEZ [Interacting]
     Indication: HYPERTENSION
     Dosage: 300 MG PRO TAG
     Route: 048
     Dates: start: 20090301, end: 20111215
  2. ASPIRIN [Interacting]
     Indication: INFLUENZA LIKE ILLNESS
     Route: 048
  3. ENALAPRIL [Suspect]
     Indication: PRODUCT USED FOR UNKNOWN INDICATION
     Route: 048

REACTIONS (2)
  - DRUG INTERACTION [None]
  - RENAL FAILURE ACUTE [None]
